FAERS Safety Report 18782483 (Version 1)
Quarter: 2021Q1

REPORT INFORMATION
  Report Type: Spontaneous
  Country: US (occurrence: US)
  Receive Date: 20210125
  Receipt Date: 20210125
  Transmission Date: 20210419
  Serious: No
  Sender: FDA-Public Use
  Company Number: US-ALLERGAN-2042542US

PATIENT
  Sex: Female

DRUGS (1)
  1. RESTASIS [Suspect]
     Active Substance: CYCLOSPORINE
     Indication: DRY AGE-RELATED MACULAR DEGENERATION
     Dosage: 2 GTT, BID
     Route: 047
     Dates: start: 20201027

REACTIONS (8)
  - Visual impairment [Unknown]
  - Eye irritation [Unknown]
  - Off label use [Unknown]
  - Mydriasis [Unknown]
  - Photophobia [Unknown]
  - Vision blurred [Unknown]
  - Foreign body sensation in eyes [Unknown]
  - Drug ineffective for unapproved indication [Unknown]

NARRATIVE: CASE EVENT DATE: 20201027
